FAERS Safety Report 20461603 (Version 1)
Quarter: 2022Q1

REPORT INFORMATION
  Report Type: Spontaneous
  Country: US (occurrence: US)
  Receive Date: 20220211
  Receipt Date: 20220211
  Transmission Date: 20220423
  Serious: Yes (Other)
  Sender: FDA-Public Use
  Company Number: US-MYLANLABS-2022M1011620

PATIENT
  Age: 32 Year
  Sex: Female

DRUGS (14)
  1. ACYCLOVIR [Suspect]
     Active Substance: ACYCLOVIR
     Indication: Mass
     Dosage: 400 MILLIGRAM, TID, ADMINISTERED THREE TIMES DAY FOR 10 DAYS.
     Route: 048
  2. ACYCLOVIR [Suspect]
     Active Substance: ACYCLOVIR
     Indication: Genital herpes
  3. VALACYCLOVIR HYDROCHLORIDE [Suspect]
     Active Substance: VALACYCLOVIR HYDROCHLORIDE
     Indication: Mass
     Dosage: 1 MILLIGRAM, BID, ADMINISTERED 10 DAYS.
     Route: 048
  4. VALACYCLOVIR HYDROCHLORIDE [Suspect]
     Active Substance: VALACYCLOVIR HYDROCHLORIDE
     Indication: Genital herpes
     Dosage: 1 MILLIGRAM, QD
     Route: 048
  5. IMIQUIMOD [Suspect]
     Active Substance: IMIQUIMOD
     Indication: Mass
     Dosage: APPLIED TIMES A WEEK FOR 6 WEEKS, CONTINUED FOR ADDITIONAL 10 WEEKS, CONTINUED FOR A TOTAL OF 7 MONT
     Route: 061
  6. IMIQUIMOD [Suspect]
     Active Substance: IMIQUIMOD
     Indication: Genital herpes
  7. ACYCLOVIR [Concomitant]
     Active Substance: ACYCLOVIR
     Indication: Mass
     Dosage: 5 MILLIGRAM/KILOGRAM, Q8H
     Route: 042
  8. ACYCLOVIR [Concomitant]
     Active Substance: ACYCLOVIR
     Indication: Genital herpes
  9. PREDNISONE [Concomitant]
     Active Substance: PREDNISONE
     Indication: Vulvovaginal inflammation
     Dosage: UNK
     Route: 048
  10. CLINDAMYCIN [Concomitant]
     Active Substance: CLINDAMYCIN
     Indication: Vulvovaginal inflammation
     Dosage: UNK
     Route: 042
  11. AMPICILLIN SODIUM\SULBACTAM SODIUM [Concomitant]
     Active Substance: AMPICILLIN SODIUM\SULBACTAM SODIUM
     Indication: Vulvovaginal inflammation
     Dosage: UNK
     Route: 065
  12. FLUCONAZOLE [Concomitant]
     Active Substance: FLUCONAZOLE
     Indication: Antifungal prophylaxis
     Dosage: UNK
     Route: 065
  13. THALIDOMIDE [Concomitant]
     Active Substance: THALIDOMIDE
     Indication: Mass
     Dosage: 150 MILLIGRAM, QD, ADMINISTERED FOR TOTAL OF 7 MONTHS.
     Route: 048
  14. CIDOFOVIR [Concomitant]
     Active Substance: CIDOFOVIR
     Indication: Mass
     Dosage: ADMINISTERED FOR TOTAL OF 7 MONTHS.
     Route: 061

REACTIONS (1)
  - Drug ineffective [Unknown]
